FAERS Safety Report 14982999 (Version 1)
Quarter: 2018Q2

REPORT INFORMATION
  Report Type: Spontaneous
  Country: JP (occurrence: JP)
  Receive Date: 20180607
  Receipt Date: 20180607
  Transmission Date: 20180711
  Serious: Yes (Hospitalization, Other)
  Sender: FDA-Public Use
  Company Number: JP-GLAXOSMITHKLINE-JP2018JPN080849

PATIENT
  Age: 87 Year
  Sex: Female
  Weight: 30 kg

DRUGS (3)
  1. PURSENNID TABLETS [Concomitant]
     Dosage: 24 MG, BID
     Route: 048
  2. VALTREX [Suspect]
     Active Substance: VALACYCLOVIR HYDROCHLORIDE
     Indication: HERPES ZOSTER
     Dosage: 1000 MG, TID
     Route: 048
     Dates: start: 20180501, end: 20180504
  3. MAGNESIUM OXIDE. [Concomitant]
     Active Substance: MAGNESIUM OXIDE
     Dosage: 330 MG, BID
     Route: 048

REACTIONS (5)
  - Feeding disorder [Unknown]
  - Altered state of consciousness [Recovering/Resolving]
  - Somnolence [Unknown]
  - Toxic encephalopathy [Recovered/Resolved]
  - Renal impairment [Recovering/Resolving]

NARRATIVE: CASE EVENT DATE: 201805
